FAERS Safety Report 7221705-3 (Version None)
Quarter: 2011Q1

REPORT INFORMATION
  Report Type: 
  Country: None (occurrence: None)
  Receive Date: 20110112
  Receipt Date: 20110107
  Transmission Date: 20110831
  Serious: Yes (Other)
  Sender: FDA-Public Use
  Company Number: US-SANOFI-AVENTIS-2011SA001547

PATIENT
  Age: 62 Year
  Sex: Female

DRUGS (1)
  1. LOVENOX [Suspect]
     Route: 065
     Dates: start: 20110103, end: 20110103

REACTIONS (2)
  - OPERATIVE HAEMORRHAGE [None]
  - HAEMOGLOBIN DECREASED [None]
